FAERS Safety Report 6256681-3 (Version None)
Quarter: 2009Q3

REPORT INFORMATION
  Report Type: 
  Country: None (occurrence: None)
  Receive Date: 20090706
  Receipt Date: 20090624
  Transmission Date: 20100115
  Serious: Yes (Hospitalization)
  Sender: FDA-Public Use
  Company Number: AU-NOVOPROD-288670

PATIENT
  Age: 65 Year
  Sex: Male
  Weight: 73 kg

DRUGS (3)
  1. NOVOLOG [Suspect]
     Indication: TYPE 1 DIABETES MELLITUS
     Dosage: 30 U, QD
     Route: 058
     Dates: start: 20030101
  2. NOVORAPID PENFILL [Concomitant]
     Indication: TYPE 1 DIABETES MELLITUS
  3. LANTUS [Concomitant]
     Dosage: 20 U, QD
     Route: 058

REACTIONS (1)
  - INTESTINAL OBSTRUCTION [None]
